FAERS Safety Report 12950913 (Version 2)
Quarter: 2016Q4

REPORT INFORMATION
  Report Type: Report from Study
  Country: BR (occurrence: BR)
  Receive Date: 20161117
  Receipt Date: 20161118
  Transmission Date: 20170207
  Serious: Yes (Hospitalization, Other)
  Sender: FDA-Public Use
  Company Number: BR-GLAXOSMITHKLINE-BR2016GSK058712

PATIENT
  Sex: Female
  Weight: 67 kg

DRUGS (2)
  1. BELIMUMAB [Suspect]
     Active Substance: BELIMUMAB
     Indication: SYSTEMIC LUPUS ERYTHEMATOSUS
     Dosage: UNK
     Dates: start: 20160418
  2. BELIMUMAB [Suspect]
     Active Substance: BELIMUMAB
     Dosage: UNK
     Dates: start: 20160904

REACTIONS (7)
  - Drug dose omission [Unknown]
  - Inappropriate schedule of drug administration [Unknown]
  - Dengue fever [Unknown]
  - Pyrexia [Unknown]
  - Appendix disorder [Unknown]
  - Influenza [Unknown]
  - Pruritus [Unknown]
